FAERS Safety Report 9455937 (Version 2)
Quarter: 2014Q2

REPORT INFORMATION
  Report Type: Spontaneous
  Country: US (occurrence: US)
  Receive Date: 20130813
  Receipt Date: 20140501
  Transmission Date: 20141212
  Serious: Yes (Congenital Anomaly, Other)
  Sender: FDA-Public Use
  Company Number: US-PFIZER INC-2013231508

PATIENT
  Sex: Female

DRUGS (11)
  1. ZOLOFT [Suspect]
     Dosage: UNK
     Route: 064
     Dates: end: 201007
  2. ZOLOFT [Suspect]
     Dosage: UNK
     Route: 064
     Dates: start: 201008, end: 201111
  3. NITROFURANTOIN [Concomitant]
     Dosage: UNK
     Route: 064
  4. TERCONAZOLE [Concomitant]
     Dosage: UNK
     Route: 064
  5. ONDANSETRON [Concomitant]
     Dosage: UNK
     Route: 064
  6. LORAZEPAM [Concomitant]
     Dosage: UNK
     Route: 064
  7. SERTRALINE [Concomitant]
     Dosage: UNK
     Route: 064
  8. AMBIEN [Concomitant]
     Dosage: UNK
     Route: 064
  9. AZITHROMYCIN [Concomitant]
     Dosage: UNK
     Route: 064
  10. HYDROCORTISONE [Concomitant]
     Dosage: UNK
     Route: 064
  11. PRENATAL VITAMINS [Concomitant]
     Dosage: UNK
     Route: 064

REACTIONS (5)
  - Maternal exposure during pregnancy [Unknown]
  - Heart disease congenital [Unknown]
  - Pulmonary artery stenosis congenital [Unknown]
  - Atrial septal defect [Unknown]
  - Congenital anomaly [Unknown]
